FAERS Safety Report 5558232-5 (Version None)
Quarter: 2007Q4

REPORT INFORMATION
  Report Type: 
  Country: None (occurrence: None)
  Receive Date: 20071130
  Receipt Date: 20070924
  Transmission Date: 20080405
  Serious: No
  Sender: FDA-Public Use
  Company Number: US200709001257

PATIENT
  Age: 45 Year
  Sex: Female

DRUGS (5)
  1. BYETTA [Suspect]
     Indication: TYPE 2 DIABETES MELLITUS
     Dosage: 5 UG, 2/D, SUBCUTANEOUS; 10 UG, 2/D, SUBCUTANEOUS; 10 UG, SUBCUTANEOUS
     Route: 058
     Dates: start: 20070401, end: 20070501
  2. BYETTA [Suspect]
     Indication: TYPE 2 DIABETES MELLITUS
     Dosage: 5 UG, 2/D, SUBCUTANEOUS; 10 UG, 2/D, SUBCUTANEOUS; 10 UG, SUBCUTANEOUS
     Route: 058
     Dates: start: 20070828, end: 20070828
  3. BYETTA [Suspect]
     Indication: TYPE 2 DIABETES MELLITUS
     Dosage: 5 UG, 2/D, SUBCUTANEOUS; 10 UG, 2/D, SUBCUTANEOUS; 10 UG, SUBCUTANEOUS
     Route: 058
     Dates: start: 20070501
  4. BYETTA [Suspect]
  5. METFORMIN HCL [Concomitant]

REACTIONS (5)
  - BLOOD GLUCOSE DECREASED [None]
  - DECREASED APPETITE [None]
  - DIZZINESS [None]
  - INCORRECT DOSE ADMINISTERED [None]
  - NAUSEA [None]
